FAERS Safety Report 4332287-8 (Version None)
Quarter: 2004Q1

REPORT INFORMATION
  Report Type: 
  Country: None (occurrence: None)
  Receive Date: 20040326
  Receipt Date: 20040121
  Transmission Date: 20041129
  Serious: Yes (Other)
  Sender: FDA-Public Use
  Company Number: WAES0401USA01581

PATIENT
  Sex: 0

DRUGS (1)
  1. INVANZ [Suspect]
     Indication: SKIN INFECTION

REACTIONS (2)
  - DEHYDRATION [None]
  - DIARRHOEA [None]
